FAERS Safety Report 9146481 (Version 1)
Quarter: 2013Q1

REPORT INFORMATION
  Report Type: Spontaneous
  Country: US (occurrence: None)
  Receive Date: 20130227
  Receipt Date: 20130227
  Transmission Date: 20140127
  Serious: No
  Sender: FDA-Public Use
  Company Number: None

PATIENT
  Age: 46 Year
  Sex: Female
  Weight: 139.71 kg

DRUGS (1)
  1. THYROGEN [Suspect]
     Indication: THYROID CANCER
     Dosage: 1 MG 2 TIMES ONLY IM
     Route: 030
     Dates: start: 20130225, end: 20130225

REACTIONS (4)
  - Nausea [None]
  - Pain in jaw [None]
  - Jaw disorder [None]
  - Local swelling [None]
